FAERS Safety Report 9405306 (Version 1)
Quarter: 2013Q3

REPORT INFORMATION
  Report Type: Spontaneous
  Country: IT (occurrence: IT)
  Receive Date: 20130717
  Receipt Date: 20130717
  Transmission Date: 20140515
  Serious: Yes (Hospitalization)
  Sender: FDA-Public Use
  Company Number: IT-TEVA-418510ISR

PATIENT
  Age: 37 Year
  Sex: Female

DRUGS (4)
  1. DIAZEPAM [Suspect]
     Indication: SUICIDE ATTEMPT
     Dosage: 20 ML DAILY;
     Route: 048
     Dates: start: 20130705, end: 20130705
  2. PARACETAMOL [Suspect]
     Indication: SUICIDE ATTEMPT
     Dosage: 10 DOSAGE FORMS DAILY;
     Route: 048
     Dates: start: 20130705, end: 20130705
  3. TOPAMAX [Suspect]
     Indication: SUICIDE ATTEMPT
     Dosage: 20 DOSAGE FORMS DAILY;
     Route: 048
     Dates: start: 20130705, end: 20130705
  4. XERISTAR [Suspect]
     Indication: SUICIDE ATTEMPT
     Dosage: 14 DOSAGE FORMS DAILY; GASTRO-RESISTENT HARD CAPSULE
     Route: 048
     Dates: start: 20130705, end: 20130705

REACTIONS (3)
  - Toxicity to various agents [Recovered/Resolved]
  - Suicide attempt [Recovered/Resolved]
  - Drug abuse [Unknown]
